FAERS Safety Report 8430887-7 (Version None)
Quarter: 2012Q2

REPORT INFORMATION
  Report Type: 
  Country: None (occurrence: None)
  Receive Date: 20120323
  Receipt Date: 20110930
  Transmission Date: 20120825
  Serious: Yes (Other)
  Sender: FDA-Public Use
  Company Number: 163-21880-11070353

PATIENT
  Age: 66 Year
  Sex: Male

DRUGS (11)
  1. METFFORMIN HYDROCHLORIDE [Concomitant]
  2. REVLIMID [Suspect]
     Indication: MULTIPLE MYELOMA
     Dosage: 25 MG, 1 IN 1 D, PO, 10-5MG, DAILY, PO, 15 MG, 1 IN 1 D PO
     Route: 048
     Dates: start: 20110201
  3. REVLIMID [Suspect]
     Indication: MULTIPLE MYELOMA
     Dosage: 25 MG, 1 IN 1 D, PO, 10-5MG, DAILY, PO, 15 MG, 1 IN 1 D PO
     Route: 048
     Dates: start: 20100801
  4. REVLIMID [Suspect]
     Indication: MULTIPLE MYELOMA
     Dosage: 25 MG, 1 IN 1 D, PO, 10-5MG, DAILY, PO, 15 MG, 1 IN 1 D PO
     Route: 048
     Dates: start: 20110801
  5. NEXIUM [Concomitant]
  6. HYDROCODONE BITARTRATE [Concomitant]
  7. DECADRON [Concomitant]
  8. LOVAZA (OMEG-3 MARINE TRIGLYCERIDES) [Concomitant]
  9. LYRICA [Concomitant]
  10. CITALOPRAM (CITALIPRAM) [Concomitant]
  11. PLAVIX [Concomitant]

REACTIONS (4)
  - INTERSTITIAL LUNG DISEASE [None]
  - LIGHT CHAIN ANALYSIS INCREASED [None]
  - DRUG INEFFECTIVE [None]
  - MULTIPLE MYELOMA [None]
